FAERS Safety Report 7865281-0 (Version None)
Quarter: 2011Q4

REPORT INFORMATION
  Report Type: 
  Country: None (occurrence: None)
  Receive Date: 20111028
  Receipt Date: 20101115
  Transmission Date: 20120403
  Serious: No
  Sender: FDA-Public Use
  Company Number: US-GLAXOSMITHKLINE-A0892573A

PATIENT
  Age: 68 Year
  Sex: Female

DRUGS (8)
  1. LORAZEPAM [Concomitant]
  2. ADVAIR DISKUS 100/50 [Suspect]
     Indication: CHRONIC OBSTRUCTIVE PULMONARY DISEASE
     Dosage: 1PUFF TWICE PER DAY
     Route: 055
     Dates: start: 20070101
  3. LORTAB [Concomitant]
  4. SYNTHROID [Concomitant]
  5. POTASSIUM [Concomitant]
  6. VITAMIN D [Concomitant]
  7. SINGULAIR [Concomitant]
  8. XOPENEX [Concomitant]

REACTIONS (3)
  - OXYGEN SUPPLEMENTATION [None]
  - PRODUCT QUALITY ISSUE [None]
  - DYSPNOEA [None]
